FAERS Safety Report 11696283 (Version 2)
Quarter: 2015Q4

REPORT INFORMATION
  Report Type: Spontaneous
  Country: US (occurrence: US)
  Receive Date: 20151104
  Receipt Date: 20151120
  Transmission Date: 20160304
  Serious: Yes (Death, Hospitalization, Other)
  Sender: FDA-Public Use
  Company Number: US-ASTELLAS-2015US040780

PATIENT
  Sex: Male

DRUGS (10)
  1. AMLODIPINE BESYLATE. [Concomitant]
     Active Substance: AMLODIPINE BESYLATE
     Indication: PRODUCT USED FOR UNKNOWN INDICATION
     Route: 048
  2. XTANDI [Suspect]
     Active Substance: ENZALUTAMIDE
     Dosage: UNK UNK, UNKNOWN FREQ.
     Route: 048
     Dates: start: 20150518, end: 20150522
  3. XTANDI [Suspect]
     Active Substance: ENZALUTAMIDE
     Route: 048
     Dates: start: 20150815
  4. XTANDI [Suspect]
     Active Substance: ENZALUTAMIDE
     Dosage: 1 DF, UNK
     Route: 048
     Dates: start: 20150207
  5. XTANDI [Suspect]
     Active Substance: ENZALUTAMIDE
     Dosage: 3-4 DOSES, ONCE DAILY
     Route: 048
     Dates: start: 20150521, end: 20150707
  6. XTANDI [Suspect]
     Active Substance: ENZALUTAMIDE
     Indication: PROSTATE CANCER
     Route: 048
     Dates: start: 20150116
  7. XTANDI [Suspect]
     Active Substance: ENZALUTAMIDE
     Route: 048
     Dates: start: 20150402, end: 20150416
  8. XTANDI [Suspect]
     Active Substance: ENZALUTAMIDE
     Dosage: UNK, UNKNOWN FREQ.
     Route: 048
     Dates: end: 20151018
  9. XTANDI [Suspect]
     Active Substance: ENZALUTAMIDE
     Dosage: 1 DF, UNK
     Route: 048
     Dates: start: 20150213, end: 20150227
  10. CELEBREX [Concomitant]
     Active Substance: CELECOXIB
     Indication: PRODUCT USED FOR UNKNOWN INDICATION
     Route: 048

REACTIONS (1)
  - Respiratory failure [Fatal]
